FAERS Safety Report 25151724 (Version 5)
Quarter: 2025Q2

REPORT INFORMATION
  Report Type: Spontaneous
  Country: JP (occurrence: JP)
  Receive Date: 20250402
  Receipt Date: 20250611
  Transmission Date: 20250717
  Serious: Yes (Other)
  Sender: EISAI
  Company Number: JP-Eisai-202416928_LEN-RCC_P_1

PATIENT
  Sex: Male

DRUGS (11)
  1. LENVIMA [Suspect]
     Active Substance: LENVATINIB
     Indication: Renal cell carcinoma
     Dates: start: 20250130, end: 20250312
  2. KEYTRUDA [Suspect]
     Active Substance: PEMBROLIZUMAB
     Indication: Renal cell carcinoma
     Dates: start: 20250130, end: 20250312
  3. PREDNISOLONE [Concomitant]
     Active Substance: PREDNISOLONE
     Indication: Immune-mediated hepatic disorder
  4. PREDNISOLONE [Concomitant]
     Active Substance: PREDNISOLONE
  5. PREDNISOLONE [Concomitant]
     Active Substance: PREDNISOLONE
  6. PREDNISOLONE [Concomitant]
     Active Substance: PREDNISOLONE
  7. PREDNISOLONE [Concomitant]
     Active Substance: PREDNISOLONE
  8. URSO [Concomitant]
     Active Substance: URSODIOL
     Indication: Immune-mediated hepatic disorder
  9. GLYCYRON [Concomitant]
     Indication: Immune-mediated hepatic disorder
  10. LEVOTHYROXINE SODIUM [Concomitant]
     Active Substance: LEVOTHYROXINE SODIUM
     Indication: Immune-mediated hypothyroidism
  11. SODIUM CHLORIDE [Concomitant]
     Active Substance: SODIUM CHLORIDE
     Indication: Hyponatraemia
     Dates: start: 2025, end: 2025

REACTIONS (4)
  - Immune thrombocytopenia [Recovering/Resolving]
  - Immune-mediated hepatic disorder [Recovering/Resolving]
  - Immune-mediated hypothyroidism [Recovering/Resolving]
  - Hyponatraemia [Recovering/Resolving]

NARRATIVE: CASE EVENT DATE: 20250313
